FAERS Safety Report 9264767 (Version 1)
Quarter: 2013Q2

REPORT INFORMATION
  Report Type: Spontaneous
  Country: US (occurrence: None)
  Receive Date: 20130429
  Receipt Date: 20130429
  Transmission Date: 20140414
  Serious: Yes (Hospitalization)
  Sender: FDA-Public Use
  Company Number: None

PATIENT
  Age: 29 Year
  Sex: Female
  Weight: 60 kg

DRUGS (2)
  1. LAMOTRIGINE-LAMICTAL- [Suspect]
     Indication: CONVULSION
  2. ADALIMUMAB-HUMIRA- [Suspect]
     Indication: RHEUMATOID ARTHRITIS

REACTIONS (1)
  - Stevens-Johnson syndrome [None]
